FAERS Safety Report 5660974-8 (Version None)
Quarter: 2008Q1

REPORT INFORMATION
  Report Type: 
  Country: None (occurrence: None)
  Receive Date: 20080311
  Receipt Date: 20080228
  Transmission Date: 20080703
  Serious: Yes (Other)
  Sender: FDA-Public Use
  Company Number: US-PFIZER INC-2007106643

PATIENT
  Sex: Female
  Weight: 103 kg

DRUGS (11)
  1. LYRICA [Suspect]
     Indication: BACK PAIN
     Dates: start: 20070601, end: 20071216
  2. LYRICA [Suspect]
     Indication: HYPOAESTHESIA
  3. LYRICA [Suspect]
     Indication: LUMBAR RADICULOPATHY
  4. LYRICA [Suspect]
     Indication: NEURALGIA
  5. OPIOIDS [Suspect]
  6. ALL OTHER THERAPEUTIC PRODUCTS [Suspect]
  7. MORPHINE SULFATE [Concomitant]
     Indication: PAIN
  8. OXYCODONE HCL [Concomitant]
     Indication: PAIN
  9. PROTONIX [Concomitant]
     Indication: DYSPEPSIA
  10. VALTREX [Concomitant]
  11. TEMAZEPAM [Concomitant]
     Indication: SLEEP DISORDER

REACTIONS (11)
  - ABNORMAL DREAMS [None]
  - ANXIETY [None]
  - ATTENTION DEFICIT/HYPERACTIVITY DISORDER [None]
  - BLOOD GLUCOSE DECREASED [None]
  - DIPLOPIA [None]
  - FLUID RETENTION [None]
  - INSOMNIA [None]
  - NERVOUSNESS [None]
  - PALPITATIONS [None]
  - VISION BLURRED [None]
  - WEIGHT INCREASED [None]
